FAERS Safety Report 9486971 (Version 4)
Quarter: 2014Q3

REPORT INFORMATION
  Report Type: Spontaneous
  Country: US (occurrence: US)
  Receive Date: 20130829
  Receipt Date: 20140923
  Transmission Date: 20150326
  Serious: Yes (Hospitalization, Other)
  Sender: FDA-Public Use
  Company Number: US-BAYER-2013-104132

PATIENT
  Age: 34 Year
  Sex: Female
  Weight: 106.58 kg

DRUGS (4)
  1. MIRENA [Suspect]
     Active Substance: LEVONORGESTREL
     Dosage: 20 MCG/24HR, CONT
     Route: 015
     Dates: start: 20071011, end: 20120423
  2. BUPROPION HYDROCHLORIDE. [Concomitant]
     Active Substance: BUPROPION HYDROCHLORIDE
     Dosage: 150 MG, QD
     Route: 048
  3. TOPIRAMATE. [Concomitant]
     Active Substance: TOPIRAMATE
     Dosage: 25 MG,2 TABLETS IN EVENING
     Route: 048
  4. CITALOPRAM [Concomitant]
     Active Substance: CITALOPRAM HYDROBROMIDE
     Dosage: 20 MG, QD
     Route: 048

REACTIONS (14)
  - Device dislocation [None]
  - Device difficult to use [None]
  - Injury [None]
  - Abdominal pain lower [None]
  - Depression [None]
  - Emotional distress [None]
  - Uterine perforation [None]
  - Medical device pain [None]
  - Trichotillomania [None]
  - Insomnia [None]
  - Intra-abdominal haemorrhage [None]
  - Anxiety [None]
  - Infection [None]
  - Weight increased [None]

NARRATIVE: CASE EVENT DATE: 200902
